FAERS Safety Report 5532243-8 (Version None)
Quarter: 2007Q4

REPORT INFORMATION
  Report Type: 
  Country: None (occurrence: None)
  Receive Date: 20071129
  Receipt Date: 20071129
  Transmission Date: 20080405
  Serious: Yes (Other)
  Sender: FDA-Public Use
  Company Number: None

PATIENT
  Age: 42 Year
  Sex: Male
  Weight: 74.8435 kg

DRUGS (1)
  1. ETHYOL [Suspect]
     Indication: DRY MOUTH
     Dosage: 500MG SQ M-F X 4 DOSES
     Dates: start: 20071120

REACTIONS (2)
  - PRURITUS [None]
  - RASH MACULO-PAPULAR [None]
